FAERS Safety Report 18517254 (Version 8)
Quarter: 2023Q1

REPORT INFORMATION
  Report Type: Spontaneous
  Country: US (occurrence: US)
  Receive Date: 20201118
  Receipt Date: 20230216
  Transmission Date: 20230418
  Serious: Yes (Hospitalization, Other)
  Sender: FDA-Public Use
  Company Number: US-PFIZER INC-2020451261

PATIENT
  Age: 73 Year
  Sex: Male
  Weight: 97.98 kg

DRUGS (2)
  1. XELJANZ [Suspect]
     Active Substance: TOFACITINIB CITRATE
     Indication: Psoriasis
     Dosage: 10 MG, 2X/DAY
     Route: 048
     Dates: start: 2019, end: 202006
  2. XELJANZ [Suspect]
     Active Substance: TOFACITINIB CITRATE
     Indication: Psoriatic arthropathy
     Dosage: 5 MG, DAILY
     Route: 048

REACTIONS (10)
  - Cellulitis [Recovered/Resolved with Sequelae]
  - Type 2 diabetes mellitus [Unknown]
  - Atrial fibrillation [Unknown]
  - Chronic kidney disease [Unknown]
  - Off label use [Unknown]
  - Condition aggravated [Unknown]
  - Skin injury [Unknown]
  - Rash [Unknown]
  - Eczema [Not Recovered/Not Resolved]
  - Hypertension [Unknown]
